FAERS Safety Report 9333315 (Version 1)
Quarter: 2013Q2

REPORT INFORMATION
  Report Type: Spontaneous
  Country: ZA (occurrence: ZA)
  Receive Date: 20130606
  Receipt Date: 20130606
  Transmission Date: 20140414
  Serious: Yes (Hospitalization)
  Sender: FDA-Public Use
  Company Number: ZA-ABBOTT-13X-143-1099683-00

PATIENT
  Sex: Female

DRUGS (1)
  1. CREON [Suspect]
     Indication: CYSTIC FIBROSIS
     Route: 048

REACTIONS (2)
  - Lung transplant [Recovered/Resolved]
  - Unevaluable event [Unknown]
